FAERS Safety Report 25121966 (Version 1)
Quarter: 2025Q1

REPORT INFORMATION
  Report Type: Spontaneous
  Country: US (occurrence: US)
  Receive Date: 20250326
  Receipt Date: 20250326
  Transmission Date: 20250408
  Serious: Yes (Other)
  Sender: AMGEN
  Company Number: US-AMGEN-USASP2025053936

PATIENT
  Age: 72 Year
  Sex: Female
  Weight: 11.25 kg

DRUGS (4)
  1. PROLIA [Suspect]
     Active Substance: DENOSUMAB
     Indication: Osteoporosis
     Route: 065
  2. RESTASIS [Concomitant]
     Active Substance: CYCLOSPORINE
     Indication: Product used for unknown indication
     Route: 065
  3. CYCLOSPORINE [Concomitant]
     Active Substance: CYCLOSPORINE
     Indication: Product used for unknown indication
     Route: 065
  4. SORBITOL [Concomitant]
     Active Substance: SORBITOL
     Indication: Product used for unknown indication
     Route: 065

REACTIONS (16)
  - Exophthalmos [Unknown]
  - Thrombosis [Unknown]
  - Pulmonary thrombosis [Unknown]
  - Blood pressure increased [Unknown]
  - Hypercalcaemia [Unknown]
  - Dry throat [Unknown]
  - Mobility decreased [Unknown]
  - Dry mouth [Unknown]
  - Pain in extremity [Unknown]
  - Muscle spasms [Unknown]
  - Dyspepsia [Unknown]
  - Unevaluable event [Unknown]
  - Blood cholesterol increased [Unknown]
  - Contusion [Unknown]
  - Abdominal distension [Unknown]
  - Ocular hyperaemia [Unknown]
